FAERS Safety Report 9645889 (Version 2)
Quarter: 2015Q2

REPORT INFORMATION
  Report Type: Spontaneous
  Country: US (occurrence: US)
  Receive Date: 20131025
  Receipt Date: 20150522
  Transmission Date: 20150821
  Serious: Yes (Other)
  Sender: FDA-Public Use
  Company Number: PHHY2013US118265

PATIENT
  Age: 3 Year
  Sex: Male

DRUGS (1)
  1. TRAMADOL [Suspect]
     Active Substance: TRAMADOL
     Indication: PRODUCT USED FOR UNKNOWN INDICATION
     Route: 065

REACTIONS (10)
  - Vomiting [Unknown]
  - Depressed level of consciousness [Unknown]
  - Drug screen false positive [Unknown]
  - Ataxia [Unknown]
  - Protrusion tongue [Unknown]
  - Unresponsive to stimuli [Unknown]
  - Overdose [Unknown]
  - Movement disorder [Unknown]
  - Somnolence [Unknown]
  - Respiration abnormal [Unknown]
